FAERS Safety Report 16317328 (Version 3)
Quarter: 2019Q2

REPORT INFORMATION
  Report Type: Report from Study
  Country: US (occurrence: US)
  Receive Date: 20190515
  Receipt Date: 20190530
  Transmission Date: 20190711
  Serious: Yes (Hospitalization, Other)
  Sender: FDA-Public Use
  Company Number: US-ROCHE-2310684

PATIENT
  Sex: Female

DRUGS (1)
  1. OCREVUS [Suspect]
     Active Substance: OCRELIZUMAB
     Indication: PRIMARY PROGRESSIVE MULTIPLE SCLEROSIS
     Dosage: LAST DOSE: 08/NOV/2018
     Route: 065
     Dates: start: 20181025

REACTIONS (4)
  - Urinary tract infection [Unknown]
  - Skin disorder [Unknown]
  - Wound [Not Recovered/Not Resolved]
  - Metabolic encephalopathy [Unknown]
